FAERS Safety Report 4700250-0 (Version None)
Quarter: 2005Q2

REPORT INFORMATION
  Report Type: 
  Country: None (occurrence: None)
  Receive Date: 20050624
  Receipt Date: 20050624
  Transmission Date: 20051028
  Serious: Yes (Life-Threatening, Hospitalization)
  Sender: FDA-Public Use
  Company Number: None

PATIENT
  Age: 55 Year
  Sex: Male
  Weight: 85 kg

DRUGS (12)
  1. RITUXIMAB     750MG [Suspect]
     Indication: LYMPHOMA
     Dosage: 750MG   ONCE    INTRAVENOU
     Route: 042
     Dates: start: 20050610, end: 20050610
  2. ACETAMINOPHEN [Concomitant]
  3. DIPHENHYDRAMINE [Concomitant]
  4. HYDROCORTISONE [Concomitant]
  5. LORATADINE [Concomitant]
  6. RANITIDINE [Concomitant]
  7. FELODIPINE [Concomitant]
  8. PRAZOSIN [Concomitant]
  9. METOPROLOL [Concomitant]
  10. FUROSEMIDE [Concomitant]
  11. ALLOPURINOL [Concomitant]
  12. ALBUTEROL [Concomitant]

REACTIONS (3)
  - ACUTE RESPIRATORY FAILURE [None]
  - INFUSION RELATED REACTION [None]
  - PLEURAL EFFUSION [None]
